FAERS Safety Report 6472800-8 (Version None)
Quarter: 2009Q4

REPORT INFORMATION
  Report Type: 
  Country: None (occurrence: None)
  Receive Date: 20091203
  Receipt Date: 20091125
  Transmission Date: 20100525
  Serious: Yes (Other)
  Sender: FDA-Public Use
  Company Number: GB-BAXTER-2009BH018449

PATIENT
  Age: 37 Year
  Sex: Female

DRUGS (1)
  1. IMMUNE GLOBULIN INTRAVENOUS (HUMAN) [Suspect]
     Indication: ERYTHEMA INFECTIOSUM
     Route: 065

REACTIONS (2)
  - GRAFT THROMBOSIS [None]
  - PANCREATITIS NECROTISING [None]
